FAERS Safety Report 14685675 (Version 5)
Quarter: 2018Q4

REPORT INFORMATION
  Report Type: Spontaneous
  Country: US (occurrence: US)
  Receive Date: 20180327
  Receipt Date: 20181219
  Transmission Date: 20190204
  Serious: Yes (Other)
  Sender: FDA-Public Use
  Company Number: US-PFIZER INC-2018119925

PATIENT
  Age: 73 Year
  Sex: Male
  Weight: 82 kg

DRUGS (5)
  1. SUTENT [Interacting]
     Active Substance: SUNITINIB MALATE
     Dosage: 50 MG, CYCLIC (4 WKS ON /2 WKS OFF)
     Route: 048
     Dates: start: 201801
  2. SUTENT [Suspect]
     Active Substance: SUNITINIB MALATE
     Indication: RENAL CELL CARCINOMA
     Dosage: 50 MG, 1X/DAY
     Route: 048
  3. METOPROLOL. [Interacting]
     Active Substance: METOPROLOL
     Indication: ARRHYTHMIA PROPHYLAXIS
     Dosage: 12.5 MG, DAILY
     Route: 048
  4. FLECAINIDE [Interacting]
     Active Substance: FLECAINIDE
     Indication: ARRHYTHMIA PROPHYLAXIS
     Dosage: 150 MG, 2X/DAY
     Route: 048
  5. XARELTO [Concomitant]
     Active Substance: RIVAROXABAN
     Indication: ARRHYTHMIA PROPHYLAXIS
     Dosage: 20 MG, UNK

REACTIONS (5)
  - Drug interaction [Recovered/Resolved]
  - Bradycardia [Recovered/Resolved]
  - Heart rate decreased [Recovered/Resolved]
  - Electrocardiogram QT interval abnormal [Recovered/Resolved]
  - Electrocardiogram QT prolonged [Unknown]

NARRATIVE: CASE EVENT DATE: 20180321
